FAERS Safety Report 25060891 (Version 2)
Quarter: 2025Q2

REPORT INFORMATION
  Report Type: Report from Study
  Country: US (occurrence: US)
  Receive Date: 20250310
  Receipt Date: 20250414
  Transmission Date: 20250717
  Serious: Yes (Hospitalization, Other)
  Sender: ABBVIE
  Company Number: US-ABBVIE-6169060

PATIENT
  Age: 59 Year
  Sex: Female
  Weight: 59 kg

DRUGS (8)
  1. BOTOX [Suspect]
     Active Substance: ONABOTULINUMTOXINA
     Indication: Migraine
     Route: 030
     Dates: start: 2010, end: 2010
  2. HEPARIN [Concomitant]
     Active Substance: HEPARIN SODIUM
     Indication: Product used for unknown indication
  3. SUMATRIPTAN [Concomitant]
     Active Substance: SUMATRIPTAN
     Indication: Product used for unknown indication
  4. ELIQUIS [Concomitant]
     Active Substance: APIXABAN
     Indication: Product used for unknown indication
  5. CLOPIDOGREL [Concomitant]
     Active Substance: CLOPIDOGREL BISULFATE
     Indication: Product used for unknown indication
  6. OMEPRAZOLE [Concomitant]
     Active Substance: OMEPRAZOLE
     Indication: Product used for unknown indication
  7. LOVENOX [Concomitant]
     Active Substance: ENOXAPARIN SODIUM
     Indication: Product used for unknown indication
  8. CLONOPIN [Concomitant]
     Active Substance: CLONAZEPAM
     Indication: Product used for unknown indication

REACTIONS (9)
  - Cerebral thrombosis [Not Recovered/Not Resolved]
  - Vertigo [Recovering/Resolving]
  - Migraine [Recovering/Resolving]
  - Brain fog [Recovering/Resolving]
  - COVID-19 [Recovered/Resolved]
  - Photophobia [Not Recovered/Not Resolved]
  - Headache [Not Recovered/Not Resolved]
  - Cerebrovascular accident [Recovering/Resolving]
  - Tinnitus [Recovering/Resolving]

NARRATIVE: CASE EVENT DATE: 20211001
